FAERS Safety Report 4442473-4 (Version None)
Quarter: 2004Q3

REPORT INFORMATION
  Report Type: 
  Country: None (occurrence: None)
  Receive Date: 20040903
  Receipt Date: 20040707
  Transmission Date: 20050211
  Serious: Yes (Other)
  Sender: FDA-Public Use
  Company Number: 2004UW14023

PATIENT
  Age: 49 Year
  Sex: Male
  Weight: 88.4514 kg

DRUGS (13)
  1. CRESTOR [Suspect]
     Indication: BLOOD CHOLESTEROL
     Dates: start: 20040501
  2. AMBIEN [Concomitant]
  3. PLAVIX [Concomitant]
  4. SOMA [Concomitant]
  5. CELEBREX [Concomitant]
  6. VERAPAMIL [Concomitant]
  7. METOPROLOL [Concomitant]
  8. WARFARIN SODIUM [Concomitant]
  9. TRICOR [Concomitant]
  10. CAPTOPRIL [Concomitant]
  11. ASPIRIN [Concomitant]
  12. TRAMADOL HCL [Concomitant]
  13. DARVOCET-N 100 [Concomitant]

REACTIONS (2)
  - ABDOMINAL PAIN LOWER [None]
  - ORGASM ABNORMAL [None]
